FAERS Safety Report 17587174 (Version 1)
Quarter: 2020Q1

REPORT INFORMATION
  Report Type: Report from Study
  Country: US (occurrence: US)
  Receive Date: 20200326
  Receipt Date: 20200326
  Transmission Date: 20200409
  Serious: Yes (Hospitalization, Other)
  Sender: FDA-Public Use
  Company Number: US-PFIZER INC-2020125396

PATIENT
  Age: 64 Year
  Sex: Female
  Weight: 108.84 kg

DRUGS (23)
  1. NICOTINAMIDE [Concomitant]
     Active Substance: NIACINAMIDE
  2. ZITHROMAX [Suspect]
     Active Substance: AZITHROMYCIN DIHYDRATE
     Dosage: UNK
  3. FISH OIL [Concomitant]
     Active Substance: FISH OIL
     Indication: SUPPLEMENTATION THERAPY
     Dosage: UNK
  4. THIAMINE MONONITRATE [Concomitant]
     Active Substance: THIAMINE MONONITRATE
  5. CHROMIC CHLORIDE. [Concomitant]
     Active Substance: CHROMIC CHLORIDE
  6. GLUCOSAMINE [Concomitant]
     Active Substance: GLUCOSAMINE
     Indication: SUPPLEMENTATION THERAPY
     Dosage: UNK
  7. PYRIDOXINE HYDROCHLORIDE. [Concomitant]
     Active Substance: PYRIDOXINE HYDROCHLORIDE
  8. FOLIC ACID. [Concomitant]
     Active Substance: FOLIC ACID
  9. SODIUM ASCORBATE [Concomitant]
     Active Substance: SODIUM ASCORBATE
  10. SODIUM SELENATE [Concomitant]
     Active Substance: SODIUM SELENATE
  11. PHYTOMENADIONE [Concomitant]
     Active Substance: PHYTONADIONE
  12. ZINC OXIDE. [Concomitant]
     Active Substance: ZINC OXIDE
  13. SODIUM MOLYBDATE DIHYDRATE [Concomitant]
  14. CENTRUM JR [ASCORBIC ACID;BIOTIN;CALCIUM;CALCIUM CARBONATE;CALCIUM PAN [Concomitant]
  15. DL-ALPHA TOCOPHERYL ACETATE [Concomitant]
     Active Substance: .ALPHA.-TOCOPHEROL ACETATE, DL-
  16. HUMIRA [Suspect]
     Active Substance: ADALIMUMAB
     Dosage: 40 MG, UNK(40 MG 1 IN 2 WK)
     Route: 058
     Dates: start: 2019
  17. COLECALCIFEROL [Concomitant]
     Active Substance: CHOLECALCIFEROL
  18. CYANOCOBALAMIN. [Concomitant]
     Active Substance: CYANOCOBALAMIN
  19. POTASSIUM IODIDE. [Concomitant]
     Active Substance: POTASSIUM IODIDE
  20. MANGANESE SULFATE. [Concomitant]
     Active Substance: MANGANESE SULFATE
  21. BIOTIN [Concomitant]
     Active Substance: BIOTIN
  22. HUMIRA [Suspect]
     Active Substance: ADALIMUMAB
     Indication: CROHN^S DISEASE
     Dosage: 40 MG, UNK(40 MG 1 IN 2 WK)
     Route: 058
     Dates: start: 2017, end: 2019
  23. CALCIUM PANTOTHENATE [Concomitant]
     Active Substance: CALCIUM PANTOTHENATE

REACTIONS (6)
  - Palpitations [Recovered/Resolved]
  - Pyrexia [Unknown]
  - Chronic obstructive pulmonary disease [Unknown]
  - Pneumonia [Recovering/Resolving]
  - Atrial fibrillation [Recovered/Resolved]
  - Chills [Unknown]

NARRATIVE: CASE EVENT DATE: 2019
